FAERS Safety Report 10456701 (Version 2)
Quarter: 2014Q3

REPORT INFORMATION
  Report Type: Spontaneous
  Country: US (occurrence: US)
  Receive Date: 20140916
  Receipt Date: 20140918
  Transmission Date: 20150326
  Serious: No
  Sender: FDA-Public Use
  Company Number: US-PFIZER INC-2014253344

PATIENT
  Age: 59 Year
  Sex: Female

DRUGS (1)
  1. XALKORI [Suspect]
     Active Substance: CRIZOTINIB
     Indication: LUNG NEOPLASM MALIGNANT
     Dosage: 250 MG, 2X/DAY
     Route: 048
     Dates: start: 20140423

REACTIONS (11)
  - Dizziness [Unknown]
  - Ageusia [Unknown]
  - Chest discomfort [Unknown]
  - Nausea [Unknown]
  - Burning sensation [Unknown]
  - Chest pain [Unknown]
  - Vertigo [Unknown]
  - Constipation [Unknown]
  - Oedema peripheral [Unknown]
  - Vomiting [Unknown]
  - Photopsia [Unknown]
